FAERS Safety Report 12164328 (Version 1)
Quarter: 2016Q1

REPORT INFORMATION
  Report Type: Spontaneous
  Country: US (occurrence: US)
  Receive Date: 20160309
  Receipt Date: 20160309
  Transmission Date: 20160526
  Serious: No
  Sender: FDA-Public Use
  Company Number: US-ROCHE-1642610

PATIENT
  Sex: Female

DRUGS (4)
  1. EPIPEN [Concomitant]
     Active Substance: EPINEPHRINE
     Dosage: 2-PAK
     Route: 065
  2. XOLAIR [Suspect]
     Active Substance: OMALIZUMAB
     Indication: IDIOPATHIC URTICARIA
     Route: 058
  3. CICLOPIROX. [Concomitant]
     Active Substance: CICLOPIROX
     Route: 065
  4. TOLTERODINE [Concomitant]
     Active Substance: TOLTERODINE
     Route: 065

REACTIONS (1)
  - Drug ineffective [Unknown]
